FAERS Safety Report 12620403 (Version 2)
Quarter: 2016Q3

REPORT INFORMATION
  Report Type: Spontaneous
  Country: US (occurrence: US)
  Receive Date: 20160803
  Receipt Date: 20160828
  Transmission Date: 20161109
  Serious: No
  Sender: FDA-Public Use
  Company Number: US-ASTRAZENECA-2016SE71087

PATIENT
  Sex: Female

DRUGS (11)
  1. SYMBICORT [Suspect]
     Active Substance: BUDESONIDE\FORMOTEROL FUMARATE DIHYDRATE
     Indication: CHRONIC OBSTRUCTIVE PULMONARY DISEASE
     Dosage: 80-4.5MCG, TWO PUFFS TWICE A DAY
     Route: 055
     Dates: start: 20160518, end: 201605
  2. SYMBICORT [Suspect]
     Active Substance: BUDESONIDE\FORMOTEROL FUMARATE DIHYDRATE
     Indication: WHEEZING
     Dosage: ONE PUFF, DAILY
     Route: 055
  3. SYMBICORT [Suspect]
     Active Substance: BUDESONIDE\FORMOTEROL FUMARATE DIHYDRATE
     Indication: WHEEZING
     Dosage: 80-4.5MCG, TWO PUFFS TWICE A DAY
     Route: 055
     Dates: start: 20160518, end: 201605
  4. SYMBICORT [Suspect]
     Active Substance: BUDESONIDE\FORMOTEROL FUMARATE DIHYDRATE
     Indication: CHRONIC OBSTRUCTIVE PULMONARY DISEASE
     Dosage: ONE PUFF, DAILY
     Route: 055
  5. SYMBICORT [Suspect]
     Active Substance: BUDESONIDE\FORMOTEROL FUMARATE DIHYDRATE
     Indication: SINUSITIS
     Dosage: 80-4.5MCG, TWO PUFFS TWICE A DAY
     Route: 055
     Dates: start: 20160518, end: 201605
  6. SYMBICORT [Suspect]
     Active Substance: BUDESONIDE\FORMOTEROL FUMARATE DIHYDRATE
     Indication: BRONCHITIS
     Dosage: ONE PUFF, DAILY
     Route: 055
  7. BRIO [Concomitant]
     Dates: end: 201605
  8. SYMBICORT [Suspect]
     Active Substance: BUDESONIDE\FORMOTEROL FUMARATE DIHYDRATE
     Indication: SINUSITIS
     Dosage: ONE PUFF, DAILY
     Route: 055
  9. PROAIR HFA [Concomitant]
     Active Substance: ALBUTEROL SULFATE
  10. SYMBICORT [Suspect]
     Active Substance: BUDESONIDE\FORMOTEROL FUMARATE DIHYDRATE
     Indication: BRONCHITIS
     Dosage: 80-4.5MCG, TWO PUFFS TWICE A DAY
     Route: 055
     Dates: start: 20160518, end: 201605
  11. SPIRIVA [Concomitant]
     Active Substance: TIOTROPIUM BROMIDE MONOHYDRATE

REACTIONS (10)
  - Dyspnoea [Unknown]
  - Sinus disorder [Not Recovered/Not Resolved]
  - Heart rate increased [Unknown]
  - Drug ineffective [Recovered/Resolved]
  - Intentional product misuse [Unknown]
  - Nausea [Unknown]
  - Drug dose omission [Unknown]
  - Dysphonia [Not Recovered/Not Resolved]
  - Product use issue [Recovered/Resolved]
  - Off label use [Recovered/Resolved]

NARRATIVE: CASE EVENT DATE: 20160518
